FAERS Safety Report 8561252-X (Version None)
Quarter: 2012Q3

REPORT INFORMATION
  Report Type: 
  Country: None (occurrence: None)
  Receive Date: 20120802
  Receipt Date: 20120724
  Transmission Date: 20120928
  Serious: Yes (Other)
  Sender: FDA-Public Use
  Company Number: JP-JNJFOC-20120707188

PATIENT
  Sex: Male
  Weight: 53 kg

DRUGS (10)
  1. BESOFTEN [Concomitant]
     Dosage: AS NEEDED
     Route: 062
  2. ANTEBATE [Concomitant]
     Dosage: AS NEEDED
  3. HEPARINOID [Concomitant]
     Indication: PSORIASIS
     Dosage: AS NEEDED
     Route: 062
  4. VIDARABINE [Concomitant]
     Dosage: AS NEEDED
  5. USTEKINUMAB [Suspect]
     Indication: PSORIASIS
     Route: 058
     Dates: start: 20120213
  6. USTEKINUMAB [Suspect]
     Route: 058
     Dates: start: 20111121
  7. MYSER [Concomitant]
     Indication: PSORIASIS
     Dosage: AS NEEDED
     Route: 062
  8. USTEKINUMAB [Suspect]
     Route: 058
     Dates: start: 20110801
  9. USTEKINUMAB [Suspect]
     Route: 058
     Dates: start: 20110829
  10. GLYMESASON [Concomitant]
     Dosage: AS NEEDED
     Route: 062

REACTIONS (1)
  - PROSTATE CANCER [None]
